FAERS Safety Report 5757070-8 (Version None)
Quarter: 2008Q2

REPORT INFORMATION
  Report Type: 
  Country: None (occurrence: None)
  Receive Date: 20080603
  Receipt Date: 20080521
  Transmission Date: 20081010
  Serious: Yes (Hospitalization)
  Sender: FDA-Public Use
  Company Number: B0522063A

PATIENT
  Age: 49 Year
  Sex: Male

DRUGS (8)
  1. PAROXETINE HCL [Suspect]
     Indication: DEPRESSION
     Dosage: 20MG PER DAY
     Route: 048
     Dates: start: 20080225, end: 20080301
  2. STILNOX [Concomitant]
     Indication: DEPRESSION
     Route: 065
     Dates: start: 20080225, end: 20080312
  3. OXAZEPAM [Concomitant]
     Route: 065
     Dates: start: 20080308
  4. AMITRIPTYLINE HCL [Concomitant]
     Route: 048
     Dates: start: 20080311, end: 20080312
  5. NORSET [Concomitant]
     Route: 048
     Dates: start: 20080315, end: 20080402
  6. IMOVANE [Concomitant]
     Route: 065
     Dates: start: 20080315, end: 20080402
  7. TERCIAN [Concomitant]
     Route: 065
     Dates: start: 20080402
  8. CRESTOR [Concomitant]
     Indication: HYPERCHOLESTEROLAEMIA
     Route: 065

REACTIONS (19)
  - ABDOMINAL PAIN [None]
  - ANOREXIA [None]
  - ANXIETY [None]
  - ASTHENIA [None]
  - DIARRHOEA [None]
  - DIZZINESS [None]
  - DYSURIA [None]
  - FEELING OF DESPAIR [None]
  - GENERAL PHYSICAL HEALTH DETERIORATION [None]
  - INSOMNIA [None]
  - MALAISE [None]
  - MIDDLE INSOMNIA [None]
  - NAUSEA [None]
  - PAIN [None]
  - POLLAKIURIA [None]
  - RESTLESSNESS [None]
  - SEROTONIN SYNDROME [None]
  - SLEEP DISORDER [None]
  - WEIGHT DECREASED [None]
